FAERS Safety Report 23362667 (Version 1)
Quarter: 2024Q1

REPORT INFORMATION
  Report Type: Spontaneous
  Country: US (occurrence: None)
  Receive Date: 20240102
  Receipt Date: 20240102
  Transmission Date: 20240409
  Serious: Yes (Hospitalization)
  Sender: FDA-Public Use
  Company Number: None

PATIENT
  Sex: Male

DRUGS (1)
  1. TOBRAMYCIN [Suspect]
     Active Substance: TOBRAMYCIN
     Indication: Sinusitis
     Dosage: 300MG TWICE DAILY INHALATION
     Route: 055
     Dates: start: 202310

REACTIONS (2)
  - Antibiotic therapy [None]
  - Rehabilitation therapy [None]
